FAERS Safety Report 9626196 (Version 1)
Quarter: 2013Q4

REPORT INFORMATION
  Report Type: Spontaneous
  Country: US (occurrence: None)
  Receive Date: 20131015
  Receipt Date: 20131015
  Transmission Date: 20140711
  Serious: Yes (Other)
  Sender: FDA-Public Use
  Company Number: None

PATIENT
  Age: 48 Year
  Sex: Female
  Weight: 48.99 kg

DRUGS (1)
  1. QUILLIVANT XR [Suspect]
     Indication: ATTENTION DEFICIT/HYPERACTIVITY DISORDER
     Dosage: 3 WEEKS, 300 MG, ONCE DAILY, TAKEN BY MOUTH
     Route: 048

REACTIONS (4)
  - Dyspepsia [None]
  - Nightmare [None]
  - Haematochezia [None]
  - Drug effect decreased [None]
